FAERS Safety Report 17889255 (Version 1)
Quarter: 2020Q2

REPORT INFORMATION
  Report Type: Spontaneous
  Country: US (occurrence: US)
  Receive Date: 20200612
  Receipt Date: 20200612
  Transmission Date: 20200714
  Serious: No
  Sender: FDA-Public Use
  Company Number: US-HIKMA PHARMACEUTICALS USA INC.-US-H14001-20-01493

PATIENT
  Age: 63 Year
  Sex: Male
  Weight: 79.45 kg

DRUGS (3)
  1. FLUTICASONE. [Suspect]
     Active Substance: FLUTICASONE
     Indication: SINUSITIS
     Route: 045
     Dates: start: 2020, end: 202002
  2. FLUTICASONE. [Suspect]
     Active Substance: FLUTICASONE
     Indication: NASOPHARYNGITIS
  3. AMLODIPINE [Concomitant]
     Active Substance: AMLODIPINE BESYLATE
     Indication: HYPERTENSION
     Route: 065
     Dates: start: 202002

REACTIONS (5)
  - Drug ineffective [Recovered/Resolved]
  - Oropharyngeal pain [Unknown]
  - Parosmia [Recovered/Resolved]
  - Dysgeusia [Recovering/Resolving]
  - Nasal discomfort [Recovered/Resolved]

NARRATIVE: CASE EVENT DATE: 2020
